FAERS Safety Report 8640575 (Version 6)
Quarter: 2013Q2

REPORT INFORMATION
  Report Type: Spontaneous
  Country: US (occurrence: US)
  Receive Date: 20120628
  Receipt Date: 20130408
  Transmission Date: 20140414
  Serious: Yes (Other)
  Sender: FDA-Public Use
  Company Number: PHEH2012US012214

PATIENT
  Age: 47 Year
  Sex: Female

DRUGS (12)
  1. AFINITOR [Suspect]
     Dosage: 10 MG, DAILY
     Route: 048
     Dates: start: 20120514, end: 20120625
  2. AFINITOR [Suspect]
     Dosage: 7.5 MG, DAILY
     Route: 048
     Dates: end: 20120907
  3. AFINITOR [Suspect]
     Dosage: 5 MG, DAILY
     Route: 048
  4. ALBUTEROL [Concomitant]
  5. PHENOBARBITAL [Concomitant]
     Indication: EPILEPSY
     Dosage: 3 DF AT BEDTIME
  6. LEVOTHYROXINE [Concomitant]
     Indication: HYPOTHYROIDISM
     Dosage: 1 DF, QD
  7. LORAZEPAM [Concomitant]
  8. LISINOPRIL [Concomitant]
     Indication: PROTEINURIA
  9. SIMVASTATIN [Concomitant]
     Indication: BLOOD CHOLESTEROL INCREASED
  10. AMBIEN [Concomitant]
     Indication: SLEEP DISORDER
     Dosage: 1 DF, AT NIGHT
  11. PROZAC [Concomitant]
     Indication: DEPRESSION
  12. LEXAPRO [Concomitant]
     Indication: DEPRESSION

REACTIONS (23)
  - Angiomyolipoma [Not Recovered/Not Resolved]
  - Mental impairment [Not Recovered/Not Resolved]
  - Loss of consciousness [Not Recovered/Not Resolved]
  - Somnolence [Not Recovered/Not Resolved]
  - Dizziness [Not Recovered/Not Resolved]
  - Fear [Not Recovered/Not Resolved]
  - Hypermetropia [Not Recovered/Not Resolved]
  - Astigmatism [Not Recovered/Not Resolved]
  - Feeling abnormal [Not Recovered/Not Resolved]
  - Lung disorder [Not Recovered/Not Resolved]
  - Disturbance in attention [Not Recovered/Not Resolved]
  - Carbon dioxide decreased [Not Recovered/Not Resolved]
  - Oxygen saturation decreased [Not Recovered/Not Resolved]
  - Memory impairment [Not Recovered/Not Resolved]
  - Blood calcium decreased [Not Recovered/Not Resolved]
  - Blood cholesterol increased [Not Recovered/Not Resolved]
  - Blood triglycerides increased [Not Recovered/Not Resolved]
  - Fatigue [Not Recovered/Not Resolved]
  - Decreased appetite [Not Recovered/Not Resolved]
  - Headache [Not Recovered/Not Resolved]
  - Nausea [Not Recovered/Not Resolved]
  - Malaise [Not Recovered/Not Resolved]
  - Dyspnoea [Not Recovered/Not Resolved]
